FAERS Safety Report 5390481-1 (Version None)
Quarter: 2007Q3

REPORT INFORMATION
  Report Type: 
  Country: None (occurrence: None)
  Receive Date: 20070718
  Receipt Date: 20070501
  Transmission Date: 20080115
  Serious: No
  Sender: FDA-Public Use
  Company Number: US-KINGPHARMUSA00001-K200700546

PATIENT

DRUGS (3)
  1. LEVOXYL [Suspect]
     Indication: THYROIDECTOMY
     Dosage: 100 MCG, QD
     Route: 048
     Dates: start: 20070401
  2. PRILOSEC  /00661201/ [Concomitant]
     Indication: GASTROOESOPHAGEAL REFLUX DISEASE
     Dosage: 30 MG, BID
     Route: 048
  3. ZANTAC [Concomitant]
     Dosage: 75 MG, QD
     Route: 048

REACTIONS (3)
  - CHEST DISCOMFORT [None]
  - EPIGASTRIC DISCOMFORT [None]
  - SENSATION OF FOREIGN BODY [None]
